FAERS Safety Report 8199689-3 (Version None)
Quarter: 2012Q1

REPORT INFORMATION
  Report Type: 
  Country: None (occurrence: None)
  Receive Date: 20120311
  Receipt Date: 20120305
  Transmission Date: 20120608
  Serious: Yes (Death, Hospitalization)
  Sender: FDA-Public Use
  Company Number: US-ASTRAZENECA-2012SE05394

PATIENT
  Age: 98 Year
  Sex: Female

DRUGS (2)
  1. ARIMIDEX [Suspect]
     Indication: HORMONE LEVEL ABNORMAL
     Dosage: GENERIC
     Route: 048
  2. ARIMIDEX [Suspect]
     Indication: BREAST CANCER
     Dosage: GENERIC
     Route: 048

REACTIONS (5)
  - CELLULITIS [None]
  - DEATH [None]
  - LIP SWELLING [None]
  - RASH PRURITIC [None]
  - DRUG INTOLERANCE [None]
